FAERS Safety Report 6378025-9 (Version None)
Quarter: 2009Q3

REPORT INFORMATION
  Report Type: 
  Country: None (occurrence: None)
  Receive Date: 20090921
  Receipt Date: 20090908
  Transmission Date: 20100115
  Serious: Yes (Hospitalization)
  Sender: FDA-Public Use
  Company Number: 2009BM000220

PATIENT
  Age: 5 Year
  Sex: Female

DRUGS (2)
  1. NAGLAZYME [Suspect]
     Indication: MUCOPOLYSACCHARIDOSIS VI
     Dosage: IVDRP
     Route: 041
     Dates: end: 20090601
  2. OTHER IMMUNOSUPPRESSANTS [Concomitant]

REACTIONS (4)
  - CONFUSIONAL STATE [None]
  - DISEASE PROGRESSION [None]
  - FALL [None]
  - VOMITING [None]
